FAERS Safety Report 8139864-7 (Version None)
Quarter: 2012Q1

REPORT INFORMATION
  Report Type: 
  Country: None (occurrence: None)
  Receive Date: 20120215
  Receipt Date: 20120206
  Transmission Date: 20120608
  Serious: Yes (Hospitalization, Disabling)
  Sender: FDA-Public Use
  Company Number: FR-ASTRAZENECA-2012SE09163

PATIENT
  Age: 27698 Day
  Sex: Male

DRUGS (3)
  1. CANDESARTAN CILEXETIL AND HYDROCHLOROTHIAZIDE [Suspect]
     Indication: HYPERTENSION
     Route: 048
  2. PLATELET AGGREGATION INHIBITOR [Concomitant]
  3. RASILEZ [Suspect]
     Indication: HYPERTENSION
     Route: 048
     Dates: end: 20120112

REACTIONS (2)
  - BLINDNESS UNILATERAL [None]
  - RETINAL ARTERY OCCLUSION [None]
